FAERS Safety Report 20708960 (Version 1)
Quarter: 2022Q2

REPORT INFORMATION
  Report Type: Report from Study
  Country: US (occurrence: US)
  Receive Date: 20220414
  Receipt Date: 20220414
  Transmission Date: 20220721
  Serious: No
  Sender: FDA-Public Use
  Company Number: US-NOVARTISTESTPH-NVSC2022US084279

PATIENT
  Sex: Male

DRUGS (1)
  1. ENTRESTO [Suspect]
     Active Substance: SACUBITRIL\VALSARTAN
     Indication: Product used for unknown indication
     Dosage: 1 DOSAGE FORM, BID (24/26)
     Route: 048
     Dates: start: 2021

REACTIONS (4)
  - Cardiac stress test abnormal [Unknown]
  - Electrocardiogram abnormal [Unknown]
  - Decreased activity [Unknown]
  - Post procedural complication [Unknown]
